FAERS Safety Report 12634885 (Version 1)
Quarter: 2016Q3

REPORT INFORMATION
  Report Type: Spontaneous
  Country: US (occurrence: US)
  Receive Date: 20160808
  Receipt Date: 20160808
  Transmission Date: 20161109
  Serious: No
  Sender: FDA-Public Use
  Company Number: US-MORTON GROVE PHARMACEUTICALS, INC.-1055952

PATIENT
  Sex: Female

DRUGS (1)
  1. GENERLAC [Suspect]
     Active Substance: LACTULOSE

REACTIONS (2)
  - Abdominal discomfort [Unknown]
  - Eructation [None]
